FAERS Safety Report 8709215 (Version 4)
Quarter: 2012Q4

REPORT INFORMATION
  Report Type: 
  Country: US (occurrence: US)
  Receive Date: 20120806
  Receipt Date: 20121126
  Transmission Date: 20130627
  Serious: Yes (Hospitalization, Other)
  Sender: FDA-Public Use
  Company Number: US-ASTRAZENECA-2012SE53689

PATIENT
  Age: 72 Year
  Sex: Female
  Weight: 82.1 kg

DRUGS (1)
  1. NEXIUM [Suspect]
     Route: 048
     Dates: start: 2003

REACTIONS (2)
  - Cataract [Unknown]
  - Cardiac disorder [Unknown]
